FAERS Safety Report 10073432 (Version 1)
Quarter: 2014Q2

REPORT INFORMATION
  Report Type: Spontaneous
  Country: JP (occurrence: JP)
  Receive Date: 20140411
  Receipt Date: 20140411
  Transmission Date: 20141212
  Serious: Yes (Other)
  Sender: FDA-Public Use
  Company Number: JP-SUCAMPO PHARMA AMERICAS, INC-SPI201400243

PATIENT
  Age: 77 Year
  Sex: Female

DRUGS (3)
  1. AMITIZA [Suspect]
     Indication: CONSTIPATION
     Dosage: UNK
     Route: 048
     Dates: start: 20140401, end: 20140402
  2. FOSAMAC [Suspect]
     Indication: OSTEOPOROSIS
     Route: 048
  3. ONEALFA [Suspect]
     Indication: OSTEOPOROSIS
     Route: 048

REACTIONS (4)
  - Convulsion [Recovering/Resolving]
  - Blood pressure increased [Recovering/Resolving]
  - Nausea [Recovering/Resolving]
  - Diarrhoea [Recovering/Resolving]
